FAERS Safety Report 12370579 (Version 1)
Quarter: 2016Q2

REPORT INFORMATION
  Report Type: Spontaneous
  Country: US (occurrence: None)
  Receive Date: 20160513
  Receipt Date: 20160513
  Transmission Date: 20160815
  Serious: Yes (Hospitalization)
  Sender: FDA-Public Use
  Company Number: None

PATIENT
  Age: 31 Year
  Sex: Male
  Weight: 143.9 kg

DRUGS (6)
  1. DAUNORUBICIN [Suspect]
     Active Substance: DAUNORUBICIN
     Dates: end: 20160420
  2. DEXAMETHASONE. [Suspect]
     Active Substance: DEXAMETHASONE
     Dates: end: 20160419
  3. ONCASPAR [Suspect]
     Active Substance: PEGASPARGASE
     Dates: end: 20160416
  4. METHOTREXATE [Suspect]
     Active Substance: METHOTREXATE
     Dates: end: 20160412
  5. VINCRISTINE SULFATE. [Suspect]
     Active Substance: VINCRISTINE SULFATE
     Dates: end: 20160420
  6. CYTARABINE. [Suspect]
     Active Substance: CYTARABINE
     Dates: end: 20160330

REACTIONS (8)
  - Blood alkaline phosphatase increased [None]
  - Hyperbilirubinaemia [None]
  - Nausea [None]
  - Vomiting [None]
  - Toxicity to various agents [None]
  - Alanine aminotransferase increased [None]
  - Abdominal pain [None]
  - Aspartate aminotransferase increased [None]

NARRATIVE: CASE EVENT DATE: 20160501
